FAERS Safety Report 11726947 (Version 3)
Quarter: 2016Q2

REPORT INFORMATION
  Report Type: Spontaneous
  Country: IT (occurrence: IT)
  Receive Date: 20151112
  Receipt Date: 20160627
  Transmission Date: 20160815
  Serious: Yes (Other)
  Sender: FDA-Public Use
  Company Number: IT-ABBVIE-15P-083-1498687-00

PATIENT
  Age: 42 Year
  Sex: Female

DRUGS (2)
  1. OKI [Suspect]
     Active Substance: KETOPROFEN LYSINE
     Indication: TOOTHACHE
     Dosage: DOSAGE: 1 DOSAGE FORM
     Route: 048
     Dates: start: 20151030, end: 20151030
  2. KLACID [Suspect]
     Active Substance: CLARITHROMYCIN
     Indication: TOOTHACHE
     Dosage: DOSAGE: 1 DOSAGE FORM
     Route: 048
     Dates: start: 20151030, end: 20151030

REACTIONS (2)
  - Blister [Recovering/Resolving]
  - Drug eruption [Recovering/Resolving]

NARRATIVE: CASE EVENT DATE: 20151030
